FAERS Safety Report 24749583 (Version 1)
Quarter: 2024Q4

REPORT INFORMATION
  Report Type: Spontaneous
  Country: GR (occurrence: GR)
  Receive Date: 20241218
  Receipt Date: 20241218
  Transmission Date: 20250114
  Serious: Yes (Death, Hospitalization, Other)
  Sender: SANDOZ
  Company Number: GR-002147023-NVSC2020GR113288

PATIENT
  Age: 5 Year
  Sex: Male

DRUGS (23)
  1. THYMOCYTE IMMUNE GLOBULIN NOS [Suspect]
     Active Substance: THYMOCYTE IMMUNE GLOBULIN NOS
     Indication: Prophylaxis against graft versus host disease
     Dosage: 7.5 MG/KG TOTAL
     Route: 065
  2. BUSULFAN [Suspect]
     Active Substance: BUSULFAN
     Indication: Allogenic stem cell transplantation
     Dosage: 1.1 MG/KG (FOR FOUR CONSECUTIVE DAYS)
     Route: 065
  3. BUSULFAN [Suspect]
     Active Substance: BUSULFAN
     Indication: Bone marrow conditioning regimen
  4. BUSULFAN [Suspect]
     Active Substance: BUSULFAN
     Indication: Stem cell transplant
  5. CYCLOSPORINE [Suspect]
     Active Substance: CYCLOSPORINE
     Indication: Prophylaxis against graft versus host disease
     Dosage: UNK
     Route: 065
  6. CLINDAMYCIN [Suspect]
     Active Substance: CLINDAMYCIN
     Indication: Acute respiratory distress syndrome
     Dosage: 10 MG/KG, Q6H
     Route: 065
  7. COTRIMOXAZOLE [Suspect]
     Active Substance: SULFAMETHOXAZOLE\TRIMETHOPRIM
     Indication: Acute respiratory distress syndrome
     Dosage: UNK
     Route: 065
  8. FLUDARABINE PHOSPHATE [Suspect]
     Active Substance: FLUDARABINE PHOSPHATE
     Indication: Prophylaxis against graft versus host disease
     Dosage: 30 MG/M2, UNKNOWN (FOR FIVE CONSECUTIVE DAYS)
     Route: 065
  9. FLUDARABINE PHOSPHATE [Suspect]
     Active Substance: FLUDARABINE PHOSPHATE
     Indication: Allogenic stem cell transplantation
  10. FLUDARABINE PHOSPHATE [Suspect]
     Active Substance: FLUDARABINE PHOSPHATE
     Indication: Bone marrow conditioning regimen
  11. FLUDARABINE PHOSPHATE [Suspect]
     Active Substance: FLUDARABINE PHOSPHATE
     Indication: Stem cell transplant
  12. METHOTREXATE [Suspect]
     Active Substance: METHOTREXATE
     Indication: Prophylaxis against graft versus host disease
     Dosage: UNK (D1, D3, AND D6)
     Route: 065
  13. PYRIMETHAMINE [Suspect]
     Active Substance: PYRIMETHAMINE
     Indication: Acute respiratory distress syndrome
     Dosage: 1 MG/KG, BID
     Route: 065
  14. THIOTEPA [Suspect]
     Active Substance: THIOTEPA
     Indication: Prophylaxis against graft versus host disease
     Dosage: 5 MG/KG, BID (2 DOSAGES)
     Route: 065
  15. THIOTEPA [Suspect]
     Active Substance: THIOTEPA
     Indication: Allogenic stem cell transplantation
  16. THIOTEPA [Suspect]
     Active Substance: THIOTEPA
     Indication: Bone marrow conditioning regimen
  17. THIOTEPA [Suspect]
     Active Substance: THIOTEPA
     Indication: Stem cell transplant
  18. LEVETIRACETAM [Concomitant]
     Active Substance: LEVETIRACETAM
     Indication: Pyrexia
     Dosage: 20 MG/KG
     Route: 065
  19. LEVETIRACETAM [Concomitant]
     Active Substance: LEVETIRACETAM
     Indication: Aphasia
  20. LEVETIRACETAM [Concomitant]
     Active Substance: LEVETIRACETAM
     Indication: Nystagmus
  21. MIDAZOLAM [Concomitant]
     Active Substance: MIDAZOLAM
     Indication: Pyrexia
     Dosage: UNK
     Route: 065
  22. MIDAZOLAM [Concomitant]
     Active Substance: MIDAZOLAM
     Indication: Aphasia
  23. MIDAZOLAM [Concomitant]
     Active Substance: MIDAZOLAM
     Indication: Nystagmus

REACTIONS (14)
  - Respiratory failure [Fatal]
  - Toxoplasmosis [Fatal]
  - Cerebral toxoplasmosis [Fatal]
  - Acute respiratory distress syndrome [Fatal]
  - Febrile neutropenia [Fatal]
  - BK virus infection [Fatal]
  - Toxoplasmosis [Fatal]
  - Mucosal inflammation [Fatal]
  - Cystitis [Fatal]
  - Therapy non-responder [Fatal]
  - Acute graft versus host disease in skin [Recovering/Resolving]
  - Cystitis viral [Unknown]
  - Pyrexia [Unknown]
  - Product use in unapproved indication [Unknown]
